FAERS Safety Report 9741316 (Version 2)
Quarter: 2013Q4

REPORT INFORMATION
  Report Type: Spontaneous
  Country: SK (occurrence: SK)
  Receive Date: 20131209
  Receipt Date: 20131209
  Transmission Date: 20140711
  Serious: Yes (Death, Hospitalization)
  Sender: FDA-Public Use
  Company Number: SK-B.I. PHARMACEUTICALS,INC./RIDGEFIELD-2013-BI-38659SK

PATIENT
  Age: 69 Year
  Sex: Female

DRUGS (7)
  1. MIRAPEXIN [Suspect]
     Indication: PARKINSON^S DISEASE
     Route: 048
     Dates: start: 201310, end: 201311
  2. XARELTO (RIVAROXABANE) [Concomitant]
     Indication: CARDIAC FIBRILLATION
  3. LEXAURIN(BROMAZEPAM) [Concomitant]
  4. STALEVO [Concomitant]
  5. PK MERZ [Concomitant]
  6. AZILECT [Concomitant]
  7. MIRAPEXIN/PRAMIPEXOL [Concomitant]
     Indication: PARKINSON^S DISEASE
     Route: 048
     Dates: start: 2011, end: 201310

REACTIONS (3)
  - Pneumonia [Fatal]
  - Fatigue [Not Recovered/Not Resolved]
  - Somnolence [Not Recovered/Not Resolved]
